FAERS Safety Report 8603209-6 (Version None)
Quarter: 2012Q3

REPORT INFORMATION
  Report Type: 
  Country: None (occurrence: None)
  Receive Date: 20120817
  Receipt Date: 20120806
  Transmission Date: 20120928
  Serious: Yes (Hospitalization, Other)
  Sender: FDA-Public Use
  Company Number: GB-ROCHE-1097992

PATIENT
  Sex: Male
  Weight: 105 kg

DRUGS (2)
  1. MABTHERA [Suspect]
     Indication: PRODUCT USED FOR UNKNOWN INDICATION
     Dates: start: 20091020
  2. METHOTREXATE [Concomitant]

REACTIONS (7)
  - ATRIAL FIBRILLATION [None]
  - CHRONIC OBSTRUCTIVE PULMONARY DISEASE [None]
  - TYPE 2 DIABETES MELLITUS [None]
  - CHEST PAIN [None]
  - PALPITATIONS [None]
  - CROHN'S DISEASE [None]
  - CATARACT [None]
